FAERS Safety Report 25843107 (Version 1)
Quarter: 2025Q3

REPORT INFORMATION
  Report Type: Spontaneous
  Country: US (occurrence: US)
  Receive Date: 20250924
  Receipt Date: 20250924
  Transmission Date: 20251020
  Serious: No
  Sender: SANOFI AVENTIS
  Company Number: US-SA-2025SA283645

PATIENT
  Age: 65 Year
  Sex: Female
  Weight: 75 kg

DRUGS (9)
  1. DUPIXENT [Suspect]
     Active Substance: DUPILUMAB
     Indication: Dermatitis atopic
     Dosage: 300 MG, QOW
     Route: 058
  2. SILVER SULFADIAZINE [Concomitant]
     Active Substance: SILVER SULFADIAZINE
  3. BACITRACIN [Concomitant]
     Active Substance: BACITRACIN
  4. Dermafix [Concomitant]
  5. CLOBETASOL [Concomitant]
     Active Substance: CLOBETASOL
  6. ADVIL [Concomitant]
     Active Substance: IBUPROFEN
  7. MUPIROCIN [Concomitant]
     Active Substance: MUPIROCIN
  8. TACROLIMUS [Concomitant]
     Active Substance: TACROLIMUS
  9. EUCRISA [Concomitant]
     Active Substance: CRISABOROLE

REACTIONS (5)
  - Fall [Recovering/Resolving]
  - Skin abrasion [Recovering/Resolving]
  - Dry skin [Recovering/Resolving]
  - Pruritus [Recovering/Resolving]
  - Sensitive skin [Recovering/Resolving]

NARRATIVE: CASE EVENT DATE: 20250815
